FAERS Safety Report 12601003 (Version 2)
Quarter: 2016Q3

REPORT INFORMATION
  Report Type: Spontaneous
  Country: FR (occurrence: FR)
  Receive Date: 20160728
  Receipt Date: 20160820
  Transmission Date: 20161109
  Serious: Yes (Hospitalization, Other)
  Sender: FDA-Public Use
  Company Number: FR-BEH-2016071502

PATIENT
  Age: 71 Year
  Sex: Male

DRUGS (7)
  1. ATORVASTATIN [Concomitant]
     Active Substance: ATORVASTATIN
  2. AMIODARONE [Concomitant]
     Active Substance: AMIODARONE
  3. PRIVIGEN [Suspect]
     Active Substance: HUMAN IMMUNOGLOBULIN G
     Indication: POLYNEUROPATHY
     Dosage: 2000 MG/KG, OD
     Route: 042
     Dates: start: 20160601, end: 20160606
  4. ADENURIC [Concomitant]
     Active Substance: FEBUXOSTAT
  5. TOVIAZ [Concomitant]
     Active Substance: FESOTERODINE FUMARATE
  6. VESICARE [Concomitant]
     Active Substance: SOLIFENACIN SUCCINATE
  7. TEMERIT [Concomitant]
     Active Substance: NEBIVOLOL

REACTIONS (1)
  - Pulmonary embolism [Recovering/Resolving]
